FAERS Safety Report 6461070-2 (Version None)
Quarter: 2009Q4

REPORT INFORMATION
  Report Type: 
  Country: None (occurrence: None)
  Receive Date: 20091130
  Receipt Date: 20091126
  Transmission Date: 20100525
  Serious: Yes (Death, Other)
  Sender: FDA-Public Use
  Company Number: B0606103A

PATIENT
  Sex: Female
  Weight: 71 kg

DRUGS (8)
  1. ZANAMIVIR [Suspect]
     Dosage: 250MG TWICE PER DAY
     Route: 042
     Dates: start: 20091114, end: 20091117
  2. TAREG [Suspect]
     Indication: DRUG USE FOR UNKNOWN INDICATION
     Dosage: 40MG PER DAY
     Route: 048
     Dates: start: 20091117, end: 20091118
  3. TAMIFLU [Concomitant]
     Indication: DRUG USE FOR UNKNOWN INDICATION
     Dosage: 150MG TWICE PER DAY
     Route: 048
     Dates: start: 20091106, end: 20091113
  4. CORTICOID [Concomitant]
     Indication: MYOCARDITIS
     Dosage: 1MGK PER DAY
     Route: 048
     Dates: start: 20091113
  5. ASPIRIN [Concomitant]
     Indication: DRUG USE FOR UNKNOWN INDICATION
     Route: 065
     Dates: end: 20091117
  6. DIPRIVAN [Concomitant]
     Indication: RESPIRATORY DISTRESS
     Route: 065
     Dates: start: 20091118
  7. HYPNOVEL [Concomitant]
     Indication: RESPIRATORY DISTRESS
     Route: 065
     Dates: start: 20091118
  8. SUFENTANIL CITRATE [Concomitant]
     Indication: RESPIRATORY DISTRESS
     Route: 065
     Dates: start: 20091118

REACTIONS (9)
  - CARDIOGENIC SHOCK [None]
  - CIRCULATORY COLLAPSE [None]
  - HAEMODYNAMIC INSTABILITY [None]
  - HEPATIC FAILURE [None]
  - HEPATOTOXICITY [None]
  - HYPERLACTACIDAEMIA [None]
  - HYPOTENSION [None]
  - MULTI-ORGAN FAILURE [None]
  - SEPTIC SHOCK [None]
